FAERS Safety Report 8309895-2 (Version None)
Quarter: 2012Q2

REPORT INFORMATION
  Report Type: 
  Country: None (occurrence: None)
  Receive Date: 20120425
  Receipt Date: 20120418
  Transmission Date: 20120825
  Serious: Yes (Hospitalization)
  Sender: FDA-Public Use
  Company Number: IL-ABBOTT-12P-082-0927544-00

PATIENT
  Age: 50 Year
  Sex: Female

DRUGS (2)
  1. METHOTREXATE [Concomitant]
     Indication: PSORIATIC ARTHROPATHY
  2. HUMIRA [Suspect]
     Indication: PSORIATIC ARTHROPATHY

REACTIONS (2)
  - SKIN EXFOLIATION [None]
  - PSORIASIS [None]
